FAERS Safety Report 8248197-X (Version None)
Quarter: 2012Q1

REPORT INFORMATION
  Report Type: 
  Country: None (occurrence: None)
  Receive Date: 20120330
  Receipt Date: 20120326
  Transmission Date: 20120608
  Serious: Yes (Other)
  Sender: FDA-Public Use
  Company Number: BR-ABBOTT-12P-020-0910306-00

PATIENT
  Sex: Male

DRUGS (1)
  1. HUMIRA [Suspect]
     Indication: ANKYLOSING SPONDYLITIS

REACTIONS (5)
  - SPINAL CORD INJURY [None]
  - ROAD TRAFFIC ACCIDENT [None]
  - PARAPLEGIA [None]
  - MONOPARESIS [None]
  - BEDRIDDEN [None]
